FAERS Safety Report 8125800-6 (Version None)
Quarter: 2012Q1

REPORT INFORMATION
  Report Type: 
  Country: None (occurrence: None)
  Receive Date: 20120209
  Receipt Date: 20120202
  Transmission Date: 20120608
  Serious: Yes (Hospitalization)
  Sender: FDA-Public Use
  Company Number: US-ABBOTT-12P-163-0889802-00

PATIENT
  Sex: Male
  Weight: 108.96 kg

DRUGS (8)
  1. ASPIRIN [Suspect]
     Indication: FLUSHING
  2. PLAVIX [Suspect]
     Indication: STENT PLACEMENT
     Dates: start: 20120101
  3. NIASPAN [Suspect]
     Indication: BLOOD CHOLESTEROL INCREASED
     Dosage: AT BEDTIME
  4. ZETIA [Concomitant]
     Indication: BLOOD CHOLESTEROL INCREASED
  5. ZOCOR [Suspect]
     Indication: BLOOD CHOLESTEROL INCREASED
  6. ASPIRIN [Suspect]
     Indication: PROPHYLAXIS
  7. PRILOSEC [Concomitant]
     Indication: GASTRIC ULCER
  8. FALCON EYE DROPS [Concomitant]
     Indication: GLAUCOMA

REACTIONS (16)
  - TOOTH INJURY [None]
  - BACK PAIN [None]
  - DYSSTASIA [None]
  - GAIT DISTURBANCE [None]
  - INTERVERTEBRAL DISC PROTRUSION [None]
  - FLUSHING [None]
  - NEURALGIA [None]
  - FACIAL BONES FRACTURE [None]
  - TREMOR [None]
  - SKIN BURNING SENSATION [None]
  - DRUG DOSE OMISSION [None]
  - PERIORBITAL HAEMATOMA [None]
  - BALANCE DISORDER [None]
  - FALL [None]
  - HYPOTENSION [None]
  - WALKING AID USER [None]
